FAERS Safety Report 6825410-4 (Version None)
Quarter: 2010Q3

REPORT INFORMATION
  Report Type: 
  Country: None (occurrence: None)
  Receive Date: 20100708
  Receipt Date: 20061201
  Transmission Date: 20110219
  Serious: No
  Sender: FDA-Public Use
  Company Number: US-PFIZER INC-2006151745

PATIENT
  Sex: Female
  Weight: 61.23 kg

DRUGS (8)
  1. CHANTIX [Suspect]
     Indication: SMOKING CESSATION THERAPY
     Route: 048
     Dates: start: 20061124, end: 20061130
  2. LEVOXYL [Concomitant]
     Indication: HYPOTHYROIDISM
     Route: 048
  3. CYMBALTA [Concomitant]
     Indication: DEPRESSION
     Route: 048
  4. ULTRAM [Concomitant]
     Indication: PAIN
     Route: 048
  5. MULTI-VITAMINS [Concomitant]
     Route: 048
  6. ACIDOPHILUS [Concomitant]
     Route: 048
  7. CHOLESTEROL [Concomitant]
     Indication: BLOOD CHOLESTEROL INCREASED
     Route: 048
     Dates: end: 20061130
  8. TRIFLUOPERAZINE [Concomitant]
     Indication: SCLERODERMA
     Route: 048

REACTIONS (5)
  - DECREASED APPETITE [None]
  - DYSGEUSIA [None]
  - MALAISE [None]
  - NAUSEA [None]
  - VOMITING [None]
